FAERS Safety Report 25666154 (Version 1)
Quarter: 2025Q3

REPORT INFORMATION
  Report Type: Report from Study
  Country: EU (occurrence: EU)
  Receive Date: 20250811
  Receipt Date: 20250811
  Transmission Date: 20251020
  Serious: Yes (Hospitalization)
  Sender: ALNYLAM PHARMACEUTICALS
  Company Number: EU-ALNYLAM PHARMACEUTICALS, INC.-ALN-2025-004859

PATIENT

DRUGS (2)
  1. AMVUTTRA [Suspect]
     Active Substance: VUTRISIRAN
     Indication: Product used for unknown indication
     Dosage: 25 MILLIGRAM, Q3M
     Route: 058
     Dates: start: 20241115, end: 20241115
  2. AMVUTTRA [Suspect]
     Active Substance: VUTRISIRAN
     Dosage: 25 MILLIGRAM, Q3M
     Route: 058
     Dates: start: 20250514, end: 20250514

REACTIONS (1)
  - Spinal stenosis [Recovered/Resolved]

NARRATIVE: CASE EVENT DATE: 20250722
